FAERS Safety Report 12153243 (Version 1)
Quarter: 2016Q1

REPORT INFORMATION
  Report Type: Spontaneous
  Country: GB (occurrence: GB)
  Receive Date: 20160306
  Receipt Date: 20160306
  Transmission Date: 20160526
  Serious: Yes (Other)
  Sender: FDA-Public Use
  Company Number: GB-TEVA-639730ACC

PATIENT
  Age: 59 Year
  Sex: Female
  Weight: 58 kg

DRUGS (3)
  1. FEMOSTON [Concomitant]
     Active Substance: DYDROGESTERONE\ESTRADIOL
     Dosage: 1 DOSAGE FORMS DAILY;
     Dates: start: 20121121
  2. TRIMETHOPRIM. [Suspect]
     Active Substance: TRIMETHOPRIM
     Dates: start: 20160216
  3. NITROFURANTOIN. [Concomitant]
     Active Substance: NITROFURANTOIN
     Dosage: 4 DOSAGE FORMS DAILY;
     Dates: start: 20160216

REACTIONS (1)
  - Dyspnoea [Recovered/Resolved]

NARRATIVE: CASE EVENT DATE: 20160217
